FAERS Safety Report 9934926 (Version 1)
Quarter: 2014Q1

REPORT INFORMATION
  Report Type: Spontaneous
  Country: US (occurrence: US)
  Receive Date: 20140228
  Receipt Date: 20140228
  Transmission Date: 20141002
  Serious: No
  Sender: FDA-Public Use
  Company Number: US-TEVA-465764USA

PATIENT
  Sex: Female

DRUGS (5)
  1. PROAIR HFA [Suspect]
     Indication: WHEEZING
  2. PROAIR HFA [Suspect]
     Indication: BRONCHITIS
  3. PROAIR HFA [Suspect]
     Indication: SINUSITIS
  4. DYMISTA [Concomitant]
     Indication: RHINITIS
  5. AUGMENTIN [Concomitant]
     Indication: SINUSITIS

REACTIONS (1)
  - Sinusitis [Not Recovered/Not Resolved]
